FAERS Safety Report 4679301-8 (Version None)
Quarter: 2005Q2

REPORT INFORMATION
  Report Type: 
  Country: None (occurrence: None)
  Receive Date: 20050531
  Receipt Date: 20050519
  Transmission Date: 20051028
  Serious: Yes (Hospitalization, Other)
  Sender: FDA-Public Use
  Company Number: HQWYE790219MAY05

PATIENT
  Age: 58 Year
  Sex: Female

DRUGS (1)
  1. ADVIL [Suspect]
     Indication: BRONCHITIS
     Dosage: ONE TABLET AT MIDNIGHT AND ONE TABLET AT 3 AM ORAL
     Route: 048
     Dates: start: 20050412, end: 20050412

REACTIONS (3)
  - FACE OEDEMA [None]
  - FLUSHING [None]
  - URTICARIA GENERALISED [None]
